FAERS Safety Report 9782510 (Version 1)
Quarter: 2013Q4

REPORT INFORMATION
  Report Type: Spontaneous
  Country: US (occurrence: US)
  Receive Date: 20131226
  Receipt Date: 20131226
  Transmission Date: 20140711
  Serious: No
  Sender: FDA-Public Use
  Company Number: US-009507513-1312USA007948

PATIENT
  Sex: Male

DRUGS (2)
  1. ZETIA [Suspect]
     Dosage: 10 MG, QD
     Route: 048
     Dates: start: 2012
  2. METOPROLOL [Concomitant]

REACTIONS (2)
  - Weight decreased [Unknown]
  - Drug prescribing error [Unknown]
